FAERS Safety Report 12366822 (Version 4)
Quarter: 2016Q4

REPORT INFORMATION
  Report Type: Report from Study
  Country: GB (occurrence: GB)
  Receive Date: 20160513
  Receipt Date: 20161214
  Transmission Date: 20170207
  Serious: Yes (Hospitalization, Other)
  Sender: FDA-Public Use
  Company Number: GB-AMGEN-GBRSL2016059548

PATIENT
  Age: 66 Year
  Sex: Male

DRUGS (2)
  1. ARANESP [Suspect]
     Active Substance: DARBEPOETIN ALFA
     Indication: PRODUCT USED FOR UNKNOWN INDICATION
     Dosage: 50 MUG, UNK [AUTOMATIC NEEDLE GUARD (ANG)]
     Route: 065
  2. ASPRIN [Concomitant]
     Active Substance: ASPIRIN

REACTIONS (5)
  - Renal disorder [Unknown]
  - Fall [Unknown]
  - Contusion [Unknown]
  - Diabetic ketoacidosis [Unknown]
  - Hip fracture [Unknown]
